FAERS Safety Report 13125806 (Version 2)
Quarter: 2017Q1

REPORT INFORMATION
  Report Type: Spontaneous
  Country: US (occurrence: US)
  Receive Date: 20170118
  Receipt Date: 20170202
  Transmission Date: 20170428
  Serious: Yes (Other)
  Sender: FDA-Public Use
  Company Number: US-JNJFOC-20170115086

PATIENT
  Sex: Female
  Weight: 62 kg

DRUGS (3)
  1. SIMVASTATIN. [Concomitant]
     Active Substance: SIMVASTATIN
  2. RANITIDINE. [Concomitant]
     Active Substance: RANITIDINE
  3. IMBRUVICA [Suspect]
     Active Substance: IBRUTINIB
     Indication: PRODUCT USED FOR UNKNOWN INDICATION
     Route: 048
     Dates: start: 20160922

REACTIONS (1)
  - Malignant neoplasm progression [Unknown]
